FAERS Safety Report 15356708 (Version 1)
Quarter: 2018Q3

REPORT INFORMATION
  Report Type: Spontaneous
  Country: US (occurrence: US)
  Receive Date: 20180830
  Receipt Date: 20180830
  Transmission Date: 20181010
  Serious: Yes (Hospitalization)
  Sender: FDA-Public Use
  Company Number: None

PATIENT
  Age: 98 Year
  Sex: Female
  Weight: 59.87 kg

DRUGS (1)
  1. CAPECITABINE 500 MG [Suspect]
     Active Substance: CAPECITABINE
     Indication: NEOPLASM MALIGNANT
     Dosage: ?          OTHER FREQUENCY:DAYS 1, 8, AND 15;?
     Route: 048
     Dates: start: 20180706

REACTIONS (4)
  - Blood pressure increased [None]
  - Vomiting [None]
  - Fall [None]
  - Diarrhoea [None]

NARRATIVE: CASE EVENT DATE: 20180819
